FAERS Safety Report 16712773 (Version 1)
Quarter: 2019Q3

REPORT INFORMATION
  Report Type: Spontaneous
  Country: US (occurrence: US)
  Receive Date: 20190817
  Receipt Date: 20190817
  Transmission Date: 20191004
  Serious: No
  Sender: FDA-Public Use
  Company Number: US-UNITED THERAPEUTICS-UNT-2019-013557

PATIENT
  Sex: Female
  Weight: 60.32 kg

DRUGS (1)
  1. REMODULIN [Suspect]
     Active Substance: TREPROSTINIL
     Indication: PULMONARY ARTERIAL HYPERTENSION
     Dosage: 0.082 ?G/KG, CONTINUING
     Route: 058
     Dates: start: 20190306

REACTIONS (4)
  - Pruritus [Unknown]
  - Device allergy [Unknown]
  - Infusion site infection [Unknown]
  - Device dislocation [Unknown]

NARRATIVE: CASE EVENT DATE: 2019
